FAERS Safety Report 6153106-3 (Version None)
Quarter: 2009Q2

REPORT INFORMATION
  Report Type: 
  Country: None (occurrence: None)
  Receive Date: 20090409
  Receipt Date: 20090330
  Transmission Date: 20091009
  Serious: Yes (Hospitalization)
  Sender: FDA-Public Use
  Company Number: 233474K09USA

PATIENT
  Age: 57 Year
  Sex: Female
  Weight: 89 kg

DRUGS (22)
  1. REBIF [Suspect]
     Indication: MULTIPLE SCLEROSIS
     Dosage: 22 MCG, 3 IN 1 WEEKS, SUBCUTANEOUS
     Route: 058
     Dates: start: 20090314
  2. ADVAIR HFA [Concomitant]
  3. ALBUTEROL INHALER (SALBUTAMOL /00139501/) [Concomitant]
  4. ASPIRIN [Concomitant]
  5. BACLOFEN [Concomitant]
  6. BETHANECHOL (BETHANECHOL) [Concomitant]
  7. FOLIC ACID [Concomitant]
  8. FUROSEMIDE (FUROSEMIDE /00032601/) [Concomitant]
  9. KLOR-CON [Concomitant]
  10. LANTUS [Concomitant]
  11. LEVOTHROID [Concomitant]
  12. LISINOPRIL [Concomitant]
  13. LYRICA [Concomitant]
  14. MORPHINE SULFATE INJ [Concomitant]
  15. NAMENDA [Concomitant]
  16. NOVOLOG [Concomitant]
  17. PERICOLACE (PERI-COLACE) [Concomitant]
  18. PRILOSEC [Concomitant]
  19. SPIRIVA [Concomitant]
  20. SULINDAC [Concomitant]
  21. VITAMIN WITH MINERAL (VITAMINS WITH MINERALS) [Concomitant]
  22. VITAMIN B12 [Concomitant]

REACTIONS (7)
  - ANKLE FRACTURE [None]
  - BLADDER DISORDER [None]
  - DRUG INTERACTION [None]
  - FALL [None]
  - HYPOXIA [None]
  - KIDNEY INFECTION [None]
  - MENTAL STATUS CHANGES [None]
